FAERS Safety Report 8604950-1 (Version None)
Quarter: 2012Q3

REPORT INFORMATION
  Report Type: 
  Country: None (occurrence: None)
  Receive Date: 20120820
  Receipt Date: 20120816
  Transmission Date: 20120928
  Serious: Yes (Hospitalization, Other)
  Sender: FDA-Public Use
  Company Number: US-PFIZER INC-2012201515

PATIENT
  Age: 73 Year
  Sex: Female
  Weight: 81.63 kg

DRUGS (10)
  1. INDERAL [Suspect]
     Indication: HEADACHE
  2. PROPRANOLOL [Suspect]
     Indication: HEADACHE
  3. PROPRANOLOL [Suspect]
  4. PROPRANOLOL [Suspect]
     Indication: HYPERTENSION
     Dosage: 20MG IN THE MORNING, 40MG IN THE AFTERNOON AND 20MG IN THE EVENING IN A DAY
     Route: 048
     Dates: start: 20070101, end: 20120801
  5. PREMARIN [Concomitant]
     Dosage: UNK
  6. POTASSIUM [Suspect]
     Dosage: UNK
  7. PROPRANOLOL [Suspect]
     Dosage: 20MG IN THE MORNING, 40MG IN THE AFTERNOON AND 20MG IN THE EVENING IN A DAY
     Route: 048
     Dates: start: 20120801
  8. INDERAL [Suspect]
     Indication: HYPERTENSION
     Dosage: 20MG THREE TIMES A DAY
     Route: 048
     Dates: end: 20070101
  9. LEVOXYL [Concomitant]
     Indication: AUTOIMMUNE THYROIDITIS
     Dosage: UNK
  10. CITALOPRAM HYDROBROMIDE [Suspect]
     Indication: ANXIETY
     Dosage: UNK

REACTIONS (13)
  - ANXIETY [None]
  - ARTHRALGIA [None]
  - LIMB DISCOMFORT [None]
  - INSOMNIA [None]
  - MYOCARDIAL INFARCTION [None]
  - MUSCULOSKELETAL DISCOMFORT [None]
  - ABDOMINAL DISTENSION [None]
  - WEIGHT INCREASED [None]
  - DYSGEUSIA [None]
  - COLONIC POLYP [None]
  - GASTROOESOPHAGEAL REFLUX DISEASE [None]
  - ORAL DISCOMFORT [None]
  - ABDOMINAL DISCOMFORT [None]
